FAERS Safety Report 4868410-6 (Version None)
Quarter: 2005Q4

REPORT INFORMATION
  Report Type: 
  Country: None (occurrence: None)
  Receive Date: 20051229
  Receipt Date: 20051228
  Transmission Date: 20060501
  Serious: Yes (Death, Life-Threatening, Hospitalization)
  Sender: FDA-Public Use
  Company Number: DE-GLAXOSMITHKLINE-D0048327A

PATIENT
  Age: 55 Year
  Sex: Male
  Weight: 89 kg

DRUGS (11)
  1. LAMICTAL [Suspect]
     Route: 065
     Dates: start: 20050901, end: 20050928
  2. CITALOPRAM HYDROBROMIDE [Concomitant]
     Route: 065
  3. ASPIRIN [Concomitant]
     Route: 065
  4. METOPROLOL [Concomitant]
     Route: 065
  5. TAMSULOSIN HCL [Concomitant]
     Route: 065
  6. ENALAPRIL [Concomitant]
     Route: 065
  7. THIAMINE HCL [Concomitant]
     Route: 065
  8. VITAMINE B6 [Concomitant]
     Route: 065
  9. ESOMEPRAZOLE [Concomitant]
     Route: 065
  10. MOLSIDOMINE [Concomitant]
     Route: 065
  11. LACTULOSE [Concomitant]
     Route: 065

REACTIONS (2)
  - GAMMA-GLUTAMYLTRANSFERASE INCREASED [None]
  - TOXIC EPIDERMAL NECROLYSIS [None]
